FAERS Safety Report 7215093-6 (Version None)
Quarter: 2011Q1

REPORT INFORMATION
  Report Type: 
  Country: None (occurrence: None)
  Receive Date: 20110107
  Receipt Date: 20101110
  Transmission Date: 20110831
  Serious: No
  Sender: FDA-Public Use
  Company Number: A0876739A

PATIENT
  Age: 51 Year
  Sex: Female

DRUGS (5)
  1. ESTROGEN/PROGESTERONE [Concomitant]
  2. LOVAZA [Suspect]
     Indication: BLOOD CHOLESTEROL INCREASED
     Dosage: 2CAP PER DAY
     Route: 048
     Dates: start: 20090101
  3. NEXIUM [Concomitant]
  4. MULTIVITAMIN [Concomitant]
  5. ARMOUR [Concomitant]

REACTIONS (5)
  - ERUCTATION [None]
  - INCORRECT PRODUCT STORAGE [None]
  - NAUSEA [None]
  - PRODUCT QUALITY ISSUE [None]
  - PRODUCT ODOUR ABNORMAL [None]
